FAERS Safety Report 5314147-9 (Version None)
Quarter: 2007Q2

REPORT INFORMATION
  Report Type: 
  Country: None (occurrence: None)
  Receive Date: 20070425
  Receipt Date: 20070416
  Transmission Date: 20071010
  Serious: Yes (Other)
  Sender: FDA-Public Use
  Company Number: 000#8#2007-00127

PATIENT

DRUGS (1)
  1. ALPROSTADIL [Suspect]
     Indication: HEART DISEASE CONGENITAL
     Dosage: INFUSION RATE OF EQUAL TO OR MORE THAN 15 NG/KG/MIN INTRAVENOUS DRIP
     Route: 041

REACTIONS (3)
  - CONVULSION NEONATAL [None]
  - INFANTILE APNOEIC ATTACK [None]
  - OXYGEN SATURATION DECREASED [None]
